FAERS Safety Report 4392946-8 (Version None)
Quarter: 2004Q3

REPORT INFORMATION
  Report Type: 
  Country: None (occurrence: None)
  Receive Date: 20040702
  Receipt Date: 20040625
  Transmission Date: 20050211
  Serious: Yes (Life-Threatening, Other)
  Sender: FDA-Public Use
  Company Number: 2004031865

PATIENT
  Age: 23 Year
  Sex: Male

DRUGS (1)
  1. CEFOBID [Suspect]
     Indication: ILL-DEFINED DISORDER
     Dosage: (2 GRAM,), INTRAVENOUS
     Route: 042
     Dates: start: 20040324, end: 20040324

REACTIONS (5)
  - ANAPHYLACTIC SHOCK [None]
  - HEPATIC FUNCTION ABNORMAL [None]
  - LOSS OF CONSCIOUSNESS [None]
  - MEDICATION ERROR [None]
  - TETANY [None]
